FAERS Safety Report 11159789 (Version 2)
Quarter: 2015Q3

REPORT INFORMATION
  Report Type: Report from Study
  Country: DE (occurrence: DE)
  Receive Date: 20150603
  Receipt Date: 20150731
  Transmission Date: 20151125
  Serious: Yes (Other)
  Sender: FDA-Public Use
  Company Number: DE-INCYTE CORPORATION-2015IN002454

PATIENT
  Age: 65 Year
  Sex: Female
  Weight: 51 kg

DRUGS (9)
  1. INCB018424 [Suspect]
     Active Substance: RUXOLITINIB
     Dosage: 2 DF, QD (15MG)
     Route: 048
     Dates: start: 20150320
  2. LEVOTHYROXINE. [Concomitant]
     Active Substance: LEVOTHYROXINE
     Indication: AUTOIMMUNE THYROIDITIS
     Dosage: 100 UG, QD
     Route: 065
     Dates: start: 20050107
  3. METOPROLOL [Concomitant]
     Active Substance: METOPROLOL
     Indication: BLOOD PRESSURE MEASUREMENT
     Dosage: 25 MG, QD
     Route: 065
     Dates: start: 20140626
  4. INCB018424 [Suspect]
     Active Substance: RUXOLITINIB
     Indication: MYELOFIBROSIS
     Dosage: 1 DF, QD (5 MG)
     Route: 048
     Dates: start: 20141231, end: 20150205
  5. INCB018424 [Suspect]
     Active Substance: RUXOLITINIB
     Dosage: 3 DF, QD (5MG)
     Route: 048
     Dates: start: 20150220, end: 20150305
  6. HYDROXYUREA. [Concomitant]
     Active Substance: HYDROXYUREA
     Indication: MYELOFIBROSIS
     Dosage: 1.0 G, QD
     Route: 065
     Dates: start: 19970101
  7. INCB018424 [Suspect]
     Active Substance: RUXOLITINIB
     Dosage: 4 DF, QD (5MG)
     Route: 048
     Dates: start: 20150306, end: 20150319
  8. INCB018424 [Suspect]
     Active Substance: RUXOLITINIB
     Dosage: 2 DF, QD (5MG)
     Route: 048
     Dates: start: 20150206, end: 20150219
  9. ANAGRELIDE [Concomitant]
     Active Substance: ANAGRELIDE
     Indication: MYELOFIBROSIS
     Dosage: 1.0 MG, QD
     Route: 065
     Dates: start: 20050207

REACTIONS (2)
  - Blood lactate dehydrogenase increased [Recovering/Resolving]
  - Osteoporosis [Unknown]

NARRATIVE: CASE EVENT DATE: 20150206
